FAERS Safety Report 8311846-1 (Version None)
Quarter: 2012Q2

REPORT INFORMATION
  Report Type: 
  Country: None (occurrence: None)
  Receive Date: 20120425
  Receipt Date: 20120419
  Transmission Date: 20120825
  Serious: Yes (Other)
  Sender: FDA-Public Use
  Company Number: US-PFIZER INC-2012097933

PATIENT
  Sex: Female

DRUGS (2)
  1. LATANOPROST [Suspect]
     Dosage: UNK
  2. XALATAN [Suspect]
     Dosage: UNK, EVERY OTHER DAY

REACTIONS (4)
  - EYE PRURITUS [None]
  - INTRAOCULAR PRESSURE INCREASED [None]
  - EYE IRRITATION [None]
  - EYE DISORDER [None]
